FAERS Safety Report 16534848 (Version 3)
Quarter: 2019Q4

REPORT INFORMATION
  Report Type: Report from Study
  Country: US (occurrence: US)
  Receive Date: 20190705
  Receipt Date: 20191016
  Transmission Date: 20200122
  Serious: Yes (Hospitalization, Other)
  Sender: FDA-Public Use
  Company Number: US-ROCHE-2092892

PATIENT
  Age: 77 Year
  Sex: Male
  Weight: 106.24 kg

DRUGS (22)
  1. MIRALAX [Concomitant]
     Active Substance: POLYETHYLENE GLYCOL 3350
     Route: 048
  2. NUTROPIN AQ [Suspect]
     Active Substance: SOMATROPIN
     Indication: GROWTH HORMONE DEFICIENCY
     Route: 058
  3. PANTOPRAZOLE SODIUM. [Concomitant]
     Active Substance: PANTOPRAZOLE SODIUM
     Route: 048
  4. PREDNISONE. [Concomitant]
     Active Substance: PREDNISONE
     Dosage: MAY NEED HIGHER DOSES  INTERMITTENTLY
     Route: 048
  5. CLONIDINE HCL [Concomitant]
     Active Substance: CLONIDINE HYDROCHLORIDE
     Route: 048
  6. HYDROCORTISONE. [Concomitant]
     Active Substance: HYDROCORTISONE
     Route: 048
  7. ACETAMINOPHEN;HYDROCODONE [Concomitant]
     Active Substance: ACETAMINOPHEN\HYDROCODONE
     Dosage: 325/ 5MG
     Route: 048
  8. ASPIRIN [ACETYLSALICYLIC ACID] [Concomitant]
     Active Substance: ASPIRIN
     Route: 048
  9. LANTUS [Concomitant]
     Active Substance: INSULIN GLARGINE
     Dosage: FORM STRENGTH: 100 UNITS/ML?DOSE: 9 UNITS
     Route: 058
  10. PROMETHAZINE HCL [Concomitant]
     Active Substance: PROMETHAZINE HYDROCHLORIDE
     Route: 065
  11. ACETAMINOPHEN;HYDROCODONE [Concomitant]
     Active Substance: ACETAMINOPHEN\HYDROCODONE
     Dosage: 325/ 5MG
     Route: 048
  12. RECLAST [Concomitant]
     Active Substance: ZOLEDRONIC ACID
     Dosage: FORM STRENGTH: 5/100 ML?GIVE OVER ATLEAST 15 MINUTES?MOST RECENT DOSE IN OCT2016
     Route: 042
     Dates: start: 2010
  13. FINASTERIDE. [Concomitant]
     Active Substance: FINASTERIDE
     Route: 048
  14. SYNTHROID [Concomitant]
     Active Substance: LEVOTHYROXINE SODIUM
     Dosage: ON AN EMPTY STOMACH
     Route: 048
  15. PRAVASTATIN SODIUM. [Concomitant]
     Active Substance: PRAVASTATIN SODIUM
     Route: 048
  16. DESMOPRESSIN ACETATE. [Concomitant]
     Active Substance: DESMOPRESSIN ACETATE
     Route: 048
  17. VESICARE [Concomitant]
     Active Substance: SOLIFENACIN SUCCINATE
     Route: 048
  18. BUMETANIDE. [Concomitant]
     Active Substance: BUMETANIDE
     Route: 048
  19. HUMALOG [Concomitant]
     Active Substance: INSULIN LISPRO
  20. LISINOPRIL. [Concomitant]
     Active Substance: LISINOPRIL
     Route: 048
  21. NUTROPIN AQ [Suspect]
     Active Substance: SOMATROPIN
     Indication: HYPOPITUITARISM
  22. EPLERENONE. [Concomitant]
     Active Substance: EPLERENONE
     Route: 048

REACTIONS (39)
  - Anion gap increased [Unknown]
  - Glycosylated haemoglobin increased [Unknown]
  - Osteopenia [Unknown]
  - Chest pain [Recovered/Resolved]
  - Asthenia [Unknown]
  - Cervical vertebral fracture [Unknown]
  - Abdominal pain lower [Unknown]
  - Pulmonary oedema [Unknown]
  - Blood glucose increased [Unknown]
  - Blood sodium decreased [Unknown]
  - Urine albumin/creatinine ratio increased [Unknown]
  - Fatigue [Unknown]
  - Oedema peripheral [Unknown]
  - Rib fracture [Unknown]
  - Pain [Unknown]
  - Paraesthesia [Unknown]
  - Albumin urine present [Unknown]
  - Blood triglycerides increased [Unknown]
  - Very low density lipoprotein [Unknown]
  - Hair disorder [Unknown]
  - Cerebrovascular accident [Unknown]
  - Hemiparesis [Unknown]
  - Troponin increased [Unknown]
  - Dyspnoea [Unknown]
  - Polyuria [Recovering/Resolving]
  - Blood chloride decreased [Unknown]
  - Tri-iodothyronine free decreased [Unknown]
  - Nocturia [Unknown]
  - Haematuria [Unknown]
  - Nail disorder [Unknown]
  - Hypoaesthesia [Unknown]
  - Blood urea increased [Unknown]
  - Glomerular filtration rate decreased [Unknown]
  - Monofilament pressure perception test abnormal [Unknown]
  - Deafness [Unknown]
  - Blood thyroid stimulating hormone decreased [Unknown]
  - Thyroxine free increased [Unknown]
  - Sternal fracture [Unknown]
  - Fall [Unknown]

NARRATIVE: CASE EVENT DATE: 201610
